FAERS Safety Report 4354561-1 (Version None)
Quarter: 2004Q2

REPORT INFORMATION
  Report Type: 
  Country: None (occurrence: None)
  Receive Date: 20040503
  Receipt Date: 20040423
  Transmission Date: 20050107
  Serious: No
  Sender: FDA-Public Use
  Company Number: 2004UW04214

PATIENT
  Age: 8 Year
  Sex: Male
  Weight: 35.3806 kg

DRUGS (3)
  1. SEROQUEL [Suspect]
     Indication: AGITATION
     Dosage: 25 MG-100 MG
     Dates: start: 20040227, end: 20040303
  2. SEROQUEL [Suspect]
     Indication: BIPOLAR DISORDER
     Dosage: 25 MG-100 MG
     Dates: start: 20040227, end: 20040303
  3. DEPAKOTE [Concomitant]

REACTIONS (3)
  - ABDOMINAL PAIN UPPER [None]
  - NEUTROPHIL COUNT DECREASED [None]
  - WHITE BLOOD CELL COUNT DECREASED [None]
